FAERS Safety Report 4628758-7 (Version None)
Quarter: 2005Q1

REPORT INFORMATION
  Report Type: 
  Country: None (occurrence: None)
  Receive Date: 20050107
  Receipt Date: 20040929
  Transmission Date: 20050727
  Serious: No
  Sender: FDA-Public Use
  Company Number: 234953K04USA

PATIENT
  Age: 42 Year
  Sex: Male

DRUGS (2)
  1. REBIF [Suspect]
     Indication: MULTIPLE SCLEROSIS
     Dosage: 44 MCG
     Dates: start: 20040205
  2. ACETYLSALICYLIC ACID SRT [Concomitant]

REACTIONS (3)
  - CHILLS [None]
  - FEELING HOT [None]
  - FEELING OF BODY TEMPERATURE CHANGE [None]
